FAERS Safety Report 18079004 (Version 1)
Quarter: 2020Q3

REPORT INFORMATION
  Report Type: Spontaneous
  Country: US (occurrence: US)
  Receive Date: 20200728
  Receipt Date: 20200728
  Transmission Date: 20201103
  Serious: No
  Sender: FDA-Public Use
  Company Number: US-PFIZER INC-2020271899

PATIENT
  Age: 5 Year
  Sex: Male

DRUGS (2)
  1. EUCRISA [Suspect]
     Active Substance: CRISABOROLE
     Dosage: USING EUCRISA TWICE A DAY ONCE A DAY
  2. EUCRISA [Suspect]
     Active Substance: CRISABOROLE
     Indication: ECZEMA
     Dosage: 2X/DAY FOR 4 WEEKS (THEN TWICE DAILY FOR 5 DAYS A WEEK FOR MAINTENANCE)
     Dates: start: 20190711

REACTIONS (3)
  - Macule [Unknown]
  - Product use issue [Unknown]
  - Off label use [Unknown]

NARRATIVE: CASE EVENT DATE: 20190711
